FAERS Safety Report 5994355-4 (Version None)
Quarter: 2008Q4

REPORT INFORMATION
  Report Type: 
  Country: None (occurrence: None)
  Receive Date: 20081212
  Receipt Date: 20080905
  Transmission Date: 20090506
  Serious: No
  Sender: FDA-Public Use
  Company Number: US-ABBOTT-08P-163-0474565-00

PATIENT
  Sex: Male
  Weight: 98.972 kg

DRUGS (24)
  1. HUMIRA [Suspect]
     Indication: CROHN'S DISEASE
     Dosage: LOADING DOSE
     Route: 058
     Dates: start: 20080702, end: 20080702
  2. HUMIRA [Suspect]
     Route: 058
     Dates: start: 20080716, end: 20080716
  3. HUMIRA [Suspect]
     Route: 058
     Dates: start: 20080730, end: 20080813
  4. HUMIRA [Suspect]
     Dates: start: 20080827
  5. GABAPENTIN [Concomitant]
     Indication: NEUROPATHY PERIPHERAL
     Dosage: 3 - 300MG PILLS 3 TIMES DAILY
     Route: 048
  6. PROPACET 100 [Concomitant]
     Indication: PAIN
     Dosage: 2 - 100/650MG PILLS 2 TIMES DAILY
     Route: 048
  7. PROPACET 100 [Concomitant]
     Indication: NEUROPATHY PERIPHERAL
  8. PROPACET 100 [Concomitant]
     Indication: BACK DISORDER
  9. PROPACET 100 [Concomitant]
     Indication: ARTHROPATHY
  10. GLIPIZIDE [Concomitant]
     Indication: DIABETES MELLITUS
     Dosage: 3 - 5MG PILLS 2 TIMES DAILY
     Route: 048
  11. PANCRELIPASE [Concomitant]
     Indication: ENZYME SUPPLEMENTATION
     Dosage: 20000/4500/25000 ULTRASE 1 CAPSULES
     Route: 048
  12. FLUOXETINE HCL [Concomitant]
     Indication: POST-TRAUMATIC STRESS DISORDER
     Dosage: 2 - 20MG CAPSULES IN AM
     Route: 048
  13. NICOTINIC ACID [Concomitant]
     Indication: BLOOD CHOLESTEROL
     Route: 048
  14. AMLODIPINE [Concomitant]
     Indication: HYPERTENSION
     Route: 048
  15. HYDROCHLOROTHIAZIDE [Concomitant]
     Indication: HYPERTENSION
     Route: 048
  16. LISINOPRIL [Concomitant]
     Indication: HYPERTENSION
     Route: 048
  17. DOCUSATE [Concomitant]
     Indication: CONSTIPATION PROPHYLAXIS
     Route: 048
  18. MAGNESIUM OXIDE [Concomitant]
     Indication: MINERAL SUPPLEMENTATION
     Route: 048
  19. FOLIC ACID [Concomitant]
     Indication: VITAMIN SUPPLEMENTATION
     Route: 048
  20. FISH OIL [Concomitant]
     Indication: MEDICAL DIET
     Dosage: 2 - 1000MG CAPULES 2 TIMES DAILY
     Route: 048
  21. MULTI-VITAMIN [Concomitant]
     Indication: VITAMIN SUPPLEMENTATION
     Route: 048
  22. DIGESTIVES ENZYMES [Concomitant]
     Indication: ENZYME SUPPLEMENTATION
     Route: 048
  23. CYANOCOBALAMIN [Concomitant]
     Indication: VITAMIN SUPPLEMENTATION
     Route: 050
  24. CYCLOBENZAPRINE HCL [Concomitant]
     Indication: MUSCLE RELAXANT THERAPY
     Dosage: 10MG TABLET 3 TIMES DAILY AS NEEDED
     Route: 048

REACTIONS (4)
  - ABDOMINAL PAIN LOWER [None]
  - CROHN'S DISEASE [None]
  - DIARRHOEA [None]
  - INJECTION SITE PAIN [None]
